FAERS Safety Report 18180303 (Version 3)
Quarter: 2023Q1

REPORT INFORMATION
  Report Type: Other
  Country: GB (occurrence: None)
  Receive Date: 20200821
  Receipt Date: 20230104
  Transmission Date: 20230418
  Serious: Yes (Other)
  Sender: FDA-Public Use
  Company Number: GB-ROCHE-2662726

PATIENT
  Sex: Female

DRUGS (3)
  1. ESBRIET [Suspect]
     Active Substance: PIRFENIDONE
     Indication: Product used for unknown indication
     Route: 048
     Dates: start: 202001
  2. ESBRIET [Suspect]
     Active Substance: PIRFENIDONE
     Dosage: 2 TDS
     Route: 048
     Dates: start: 20200205
  3. ESBRIET [Suspect]
     Active Substance: PIRFENIDONE
     Route: 065
     Dates: start: 202002

REACTIONS (2)
  - Diabetes mellitus [Unknown]
  - Amputation [Unknown]
